FAERS Safety Report 10689712 (Version 1)
Quarter: 2015Q1

REPORT INFORMATION
  Report Type: Spontaneous
  Country: US (occurrence: None)
  Receive Date: 20150102
  Receipt Date: 20150102
  Transmission Date: 20150720
  Serious: Yes (Hospitalization)
  Sender: FDA-Public Use
  Company Number: None

PATIENT
  Age: 69 Year
  Sex: Male
  Weight: 110.5 kg

DRUGS (1)
  1. AZITHROMYCIN [Suspect]
     Active Substance: AZITHROMYCIN ANHYDROUS
     Indication: PNEUMONIA
     Dosage: MG
     Route: 048
     Dates: start: 20141207, end: 20141210

REACTIONS (7)
  - Cough [None]
  - Nausea [None]
  - Decreased appetite [None]
  - Vomiting [None]
  - Dyspnoea [None]
  - Pyrexia [None]
  - Hepatitis [None]

NARRATIVE: CASE EVENT DATE: 20141210
